FAERS Safety Report 20684041 (Version 1)
Quarter: 2022Q2

REPORT INFORMATION
  Report Type: Spontaneous
  Country: US (occurrence: None)
  Receive Date: 20220405
  Receipt Date: 20220405
  Transmission Date: 20220721
  Serious: No
  Sender: FDA-Public Use
  Company Number: None

PATIENT
  Age: 74 Year
  Sex: Male

DRUGS (1)
  1. ABIRATERONE [Suspect]
     Active Substance: ABIRATERONE
     Indication: Multiple sclerosis
     Dosage: FREQUENCY : DAILY;?
     Route: 048

REACTIONS (6)
  - Neuropathy peripheral [None]
  - Hot flush [None]
  - Raynaud^s phenomenon [None]
  - Middle insomnia [None]
  - Limb discomfort [None]
  - Prostatic specific antigen increased [None]

NARRATIVE: CASE EVENT DATE: 20211116
